FAERS Safety Report 13771926 (Version 1)
Quarter: 2017Q3

REPORT INFORMATION
  Report Type: Spontaneous
  Country: IL (occurrence: IL)
  Receive Date: 20170720
  Receipt Date: 20170720
  Transmission Date: 20171127
  Serious: Yes (Death)
  Sender: FDA-Public Use
  Company Number: IL-CIPLA LTD.-2017IL12601

PATIENT

DRUGS (2)
  1. LEVETIRACETAM. [Suspect]
     Active Substance: LEVETIRACETAM
     Dosage: UNK
     Route: 065
  2. TEMOZOLOMIDE. [Suspect]
     Active Substance: TEMOZOLOMIDE
     Dosage: UNK
     Route: 065

REACTIONS (1)
  - Acute hepatic failure [Fatal]
